FAERS Safety Report 5616720-7 (Version None)
Quarter: 2008Q1

REPORT INFORMATION
  Report Type: 
  Country: None (occurrence: None)
  Receive Date: 20080204
  Receipt Date: 20080129
  Transmission Date: 20080703
  Serious: Yes (Death, Hospitalization, Other)
  Sender: FDA-Public Use
  Company Number: 2006SP006092

PATIENT
  Age: 71 Year
  Sex: Male
  Weight: 55 kg

DRUGS (4)
  1. TEMODAL [Suspect]
     Indication: GLIOBLASTOMA MULTIFORME
     Dosage: 150 MCG/M2;QD;PO
     Route: 048
     Dates: start: 20061004, end: 20061008
  2. BETAMETHASONE [Concomitant]
  3. BETAMETHASONE [Concomitant]
  4. PHENOBAL [Concomitant]

REACTIONS (8)
  - ALTERED STATE OF CONSCIOUSNESS [None]
  - DELIRIUM [None]
  - DISEASE PROGRESSION [None]
  - ENTEROCOLITIS BACTERIAL [None]
  - ESCHERICHIA INFECTION [None]
  - HYDROCEPHALUS [None]
  - IMMUNE SYSTEM DISORDER [None]
  - PLATELET COUNT DECREASED [None]
